FAERS Safety Report 20648495 (Version 4)
Quarter: 2022Q2

REPORT INFORMATION
  Report Type: Report from Study
  Country: US (occurrence: US)
  Receive Date: 20220329
  Receipt Date: 20220616
  Transmission Date: 20220721
  Serious: No
  Sender: FDA-Public Use
  Company Number: US-NOVARTISTESTPH-NVSC2022US071028

PATIENT
  Age: 64 Year
  Sex: Male

DRUGS (1)
  1. ENTRESTO [Suspect]
     Active Substance: SACUBITRIL\VALSARTAN
     Indication: Product used for unknown indication
     Dosage: UNK, BID
     Route: 048
     Dates: start: 20211121, end: 20220328

REACTIONS (9)
  - Hypoaesthesia [Recovered/Resolved]
  - Pain of skin [Recovered/Resolved]
  - Amnesia [Recovered/Resolved]
  - Joint swelling [Unknown]
  - Limb discomfort [Unknown]
  - Feeling abnormal [Unknown]
  - Fall [Recovered/Resolved]
  - Rash [Unknown]
  - Dizziness [Recovered/Resolved]

NARRATIVE: CASE EVENT DATE: 20211121
